FAERS Safety Report 13131094 (Version 1)
Quarter: 2017Q1

REPORT INFORMATION
  Report Type: Spontaneous
  Country: IT (occurrence: IT)
  Receive Date: 20170119
  Receipt Date: 20170119
  Transmission Date: 20170428
  Serious: Yes (Death, Life-Threatening)
  Sender: FDA-Public Use
  Company Number: IT-CMP PHARMA-2017CMP00002

PATIENT
  Age: 72 Year
  Sex: Female

DRUGS (2)
  1. LEVODOPA [Suspect]
     Active Substance: LEVODOPA
     Indication: PARKINSON^S DISEASE
     Route: 065
  2. AMANTADINE HYDROCHLORIDE. [Suspect]
     Active Substance: AMANTADINE HYDROCHLORIDE
     Indication: PARKINSON^S DISEASE
     Route: 065

REACTIONS (4)
  - Renal failure [Not Recovered/Not Resolved]
  - Cardiac arrest [Fatal]
  - Neuroleptic malignant syndrome [Fatal]
  - Drug withdrawal syndrome [Fatal]
